FAERS Safety Report 10622413 (Version 9)
Quarter: 2015Q4

REPORT INFORMATION
  Report Type: Report from Study
  Country: US (occurrence: US)
  Receive Date: 20141203
  Receipt Date: 20151030
  Transmission Date: 20160304
  Serious: Yes (Death, Life-Threatening, Hospitalization, Other)
  Sender: FDA-Public Use
  Company Number: US-SANOFI-AVENTIS-2013SA070080

PATIENT
  Age: 63 Year
  Sex: Female

DRUGS (11)
  1. FLUOXETINE HYDROCHLORIDE. [Concomitant]
     Active Substance: FLUOXETINE HYDROCHLORIDE
     Dosage: STRENGTH: 20 MG; DOSE: 1 (UNIT NOT REPORTED)
     Route: 048
  2. VITAMIN D [Concomitant]
     Active Substance: CHOLECALCIFEROL
  3. VITAMIN D [Concomitant]
     Active Substance: CHOLECALCIFEROL
  4. AUBAGIO [Suspect]
     Active Substance: TERIFLUNOMIDE
     Indication: MULTIPLE SCLEROSIS
     Dosage: TAKEN FROM:ABOUT 3 MONTHS AGO
     Route: 048
     Dates: start: 20130514
  5. REBIF [Concomitant]
     Active Substance: INTERFERON BETA-1A
     Indication: MULTIPLE SCLEROSIS
     Dosage: STRENGTH: 4 MCG/0.5ML, FORM: SOLN, FREQUENCY: 3 TIMES A WEEK
     Dates: start: 20000301, end: 20130509
  6. ALENDRONATE SODIUM. [Concomitant]
     Active Substance: ALENDRONATE SODIUM
     Dosage: STRENGTH: 35 MG; DOSE: 1 P Q WEEK
  7. RESTORIL [Concomitant]
     Active Substance: TEMAZEPAM
     Dosage: STRENGTH: 30 MG; DOSE: 1 (UNIT NOT REPORTED)
  8. AUBAGIO [Suspect]
     Active Substance: TERIFLUNOMIDE
     Indication: MULTIPLE SCLEROSIS
     Dosage: AROUND JULY 10TH TO AUGUST 17TH.
     Route: 048
     Dates: end: 20150817
  9. VITAMIN D [Concomitant]
     Active Substance: CHOLECALCIFEROL
  10. TEMAZEPAM. [Concomitant]
     Active Substance: TEMAZEPAM
     Dosage: STRENGTH: 30 MG; DOSE: 1 (UNIT NOT REPORTED)
  11. SIMVASTATIN. [Concomitant]
     Active Substance: SIMVASTATIN
     Dosage: STRENGTH: 10 MG; DOSE: 1 (UNIT NOT REPORTED)
     Route: 048

REACTIONS (31)
  - Pain in extremity [Not Recovered/Not Resolved]
  - Progressive relapsing multiple sclerosis [Not Recovered/Not Resolved]
  - Asthenia [Not Recovered/Not Resolved]
  - Dysphagia [Not Recovered/Not Resolved]
  - Cognitive disorder [Unknown]
  - Drug dose omission [Unknown]
  - Chest pain [Not Recovered/Not Resolved]
  - Diarrhoea [Unknown]
  - Blood sodium decreased [Recovering/Resolving]
  - Cerebrovascular accident [Unknown]
  - Thinking abnormal [Unknown]
  - Pneumonia [Not Recovered/Not Resolved]
  - Coma [Not Recovered/Not Resolved]
  - Blood pressure increased [Recovering/Resolving]
  - Decreased immune responsiveness [Unknown]
  - Wheelchair user [Not Recovered/Not Resolved]
  - Urinary tract infection [Not Recovered/Not Resolved]
  - Multiple sclerosis relapse [Unknown]
  - Abasia [Not Recovered/Not Resolved]
  - Clostridium difficile infection [Not Recovered/Not Resolved]
  - Malaise [Unknown]
  - Memory impairment [Unknown]
  - Fall [Unknown]
  - Abdominal distension [Not Recovered/Not Resolved]
  - Vomiting [Unknown]
  - Asthenia [Fatal]
  - Hemiparesis [Not Recovered/Not Resolved]
  - Peripheral swelling [Unknown]
  - Loss of consciousness [Recovered/Resolved]
  - Hearing impaired [Unknown]
  - Bedridden [Unknown]

NARRATIVE: CASE EVENT DATE: 2013
